FAERS Safety Report 5375467-5 (Version None)
Quarter: 2007Q2

REPORT INFORMATION
  Report Type: 
  Country: None (occurrence: None)
  Receive Date: 20070629
  Receipt Date: 20070620
  Transmission Date: 20071010
  Serious: Yes (Life-Threatening, Hospitalization, Other)
  Sender: FDA-Public Use
  Company Number: JP-PFIZER INC-2007047547

PATIENT
  Sex: Female

DRUGS (12)
  1. CEFPODOXIME PROXETIL TABLET [Suspect]
     Indication: BRONCHITIS
     Dates: start: 20070508, end: 20070509
  2. FLOMOXEF SODIUM [Suspect]
     Route: 042
     Dates: start: 20070510, end: 20070512
  3. FLOMOXEF SODIUM [Suspect]
     Route: 042
     Dates: start: 20070515, end: 20070515
  4. THEOPHYLLINE [Suspect]
     Indication: BRONCHITIS
     Route: 048
     Dates: start: 20070505, end: 20070509
  5. ENTERONON R [Concomitant]
     Indication: BRONCHITIS
     Route: 048
  6. MIDAZOLAM HCL [Concomitant]
     Route: 042
     Dates: start: 20070505, end: 20070510
  7. MUCOSOLVAN [Concomitant]
     Indication: BRONCHITIS
     Route: 048
  8. PERIACTIN [Concomitant]
     Indication: BRONCHITIS
     Route: 048
  9. DIHYDROCODEINE PHOSPHATE [Concomitant]
     Indication: BRONCHITIS
     Route: 048
  10. MUCODYNE [Concomitant]
     Indication: BRONCHITIS
     Route: 048
  11. MEPTIN [Concomitant]
     Indication: BRONCHITIS
     Route: 048
  12. HOKUNALIN [Concomitant]
     Indication: BRONCHITIS

REACTIONS (1)
  - RHABDOMYOLYSIS [None]
